FAERS Safety Report 14648794 (Version 1)
Quarter: 2018Q1

REPORT INFORMATION
  Report Type: Spontaneous
  Country: FR (occurrence: FR)
  Receive Date: 20180316
  Receipt Date: 20180316
  Transmission Date: 20180509
  Serious: Yes (Other)
  Sender: FDA-Public Use
  Company Number: FR-MYLANLABS-2018M1015889

PATIENT
  Age: 62 Year
  Sex: Male
  Weight: 67 kg

DRUGS (5)
  1. CYTARABINE. [Suspect]
     Active Substance: CYTARABINE
     Indication: LYMPHOMA
     Dosage: 40 MG, CYCLE
     Route: 037
     Dates: start: 20171227, end: 20180102
  2. ETOPOSIDE. [Suspect]
     Active Substance: ETOPOSIDE
     Indication: LYMPHOMA
     Dosage: 270 MG, QD
     Route: 042
     Dates: start: 20171230, end: 20171231
  3. METHYLPREDNISOLONE. [Suspect]
     Active Substance: METHYLPREDNISOLONE
     Indication: LYMPHOMA
     Dosage: 40 MG, CYCLE
     Route: 037
     Dates: start: 20171227, end: 20180102
  4. CYTARABINE. [Suspect]
     Active Substance: CYTARABINE
     Dosage: 5500 MG, QD
     Route: 042
     Dates: start: 20171230, end: 20180101
  5. METHOTREXATE. [Suspect]
     Active Substance: METHOTREXATE
     Indication: LYMPHOMA
     Dosage: 15 MG, CYCLE
     Route: 037
     Dates: start: 20171227, end: 20180102

REACTIONS (1)
  - Neuropathy peripheral [Not Recovered/Not Resolved]

NARRATIVE: CASE EVENT DATE: 20180101
